FAERS Safety Report 4801236-8 (Version None)
Quarter: 2005Q4

REPORT INFORMATION
  Report Type: 
  Country: None (occurrence: None)
  Receive Date: 20051012
  Receipt Date: 20051004
  Transmission Date: 20060501
  Serious: Yes (Other)
  Sender: FDA-Public Use
  Company Number: 2005138035

PATIENT
  Age: 54 Year
  Sex: Female

DRUGS (3)
  1. NARDIL [Suspect]
     Indication: ILL-DEFINED DISORDER
     Dosage: 800 MG, ORAL
     Route: 048
  2. ATENOLOL [Suspect]
     Indication: ILL-DEFINED DISORDER
     Dosage: ORAL
     Route: 048
  3. SEROQUEL [Suspect]
     Indication: ILL-DEFINED DISORDER
     Dosage: 75 MG, ORAL
     Route: 048

REACTIONS (4)
  - BLOOD PRESSURE DECREASED [None]
  - BRADYCARDIA [None]
  - INTENTIONAL DRUG MISUSE [None]
  - OVERDOSE [None]
